FAERS Safety Report 5029412-2 (Version None)
Quarter: 2006Q2

REPORT INFORMATION
  Report Type: 
  Country: None (occurrence: None)
  Receive Date: 20060613
  Receipt Date: 20060531
  Transmission Date: 20061013
  Serious: Yes (Hospitalization, Other)
  Sender: FDA-Public Use
  Company Number: 2006067895

PATIENT
  Age: 50 Year
  Sex: Male
  Weight: 65 kg

DRUGS (8)
  1. UNASYN [Suspect]
     Indication: BRONCHOPNEUMONIA
     Dosage: 3 GRAM (1.5 GRAM, BID), INTRAVENOUS
     Route: 042
     Dates: start: 20060508, end: 20060515
  2. CLINDAMYCIN PHOSPHATE [Suspect]
     Indication: BRONCHOPNEUMONIA
     Dosage: 1200 MG (600 MG, BID), INTRAVENOUS
     Route: 042
     Dates: start: 20060508, end: 20060515
  3. MUCOSOLVAN (AMBROXOL HYDROCHLORIDE) [Suspect]
     Indication: ILL-DEFINED DISORDER
     Dosage: 45 MG (15 MG, TID), ORAL
     Route: 048
     Dates: start: 20060508, end: 20060515
  4. LAC B (LACTOBACILLUS BIFIDUS, LYOPHILIZED) [Suspect]
     Indication: ILL-DEFINED DISORDER
     Dosage: 3 GRAM (1 GRAM, TID), ORAL
     Route: 048
     Dates: start: 20060508, end: 20060515
  5. MEDICON (DEXTROMETHORPHAN HYDROBROMIDE) [Suspect]
     Indication: ILL-DEFINED DISORDER
     Dosage: 45 MG (15 MG, TID), ORAL
     Route: 048
     Dates: start: 20060508, end: 20060515
  6. CODEINE PHOSPHATE (CODEINE PHOSPHATE) [Suspect]
     Indication: ILL-DEFINED DISORDER
     Dosage: 30 MG (30 MG, QD), ORAL
     Route: 048
     Dates: start: 20060508, end: 20060515
  7. CALONAL (PARACETAMOL) [Suspect]
     Indication: ILL-DEFINED DISORDER
     Dosage: ORAL
     Route: 048
     Dates: start: 20060508, end: 20060515
  8. LOXOPROFEN (LOXOPROFEN) [Suspect]
     Indication: ILL-DEFINED DISORDER
     Dosage: ORAL
     Route: 048
     Dates: start: 20060508, end: 20060509

REACTIONS (2)
  - DRUG ERUPTION [None]
  - STEVENS-JOHNSON SYNDROME [None]
